FAERS Safety Report 6724239-5 (Version None)
Quarter: 2010Q2

REPORT INFORMATION
  Report Type: 
  Country: None (occurrence: None)
  Receive Date: 20100513
  Receipt Date: 20100505
  Transmission Date: 20101027
  Serious: Yes (Hospitalization)
  Sender: FDA-Public Use
  Company Number: IT-ELI_LILLY_AND_COMPANY-IT201004003751

PATIENT
  Sex: Male

DRUGS (8)
  1. BYETTA [Suspect]
     Indication: TYPE 2 DIABETES MELLITUS
     Dosage: 20 UG, DAILY (1/D)
     Route: 058
     Dates: start: 20080901, end: 20100412
  2. METFORMIN HYDROCHLORIDE [Concomitant]
     Indication: TYPE 2 DIABETES MELLITUS
     Dosage: 850 MG, DAILY (1/D)
     Route: 048
     Dates: start: 20060321, end: 20100412
  3. LIPONORM [Concomitant]
     Indication: HYPERCHOLESTEROLAEMIA
     Dosage: 20 MG, DAILY (1/D)
     Route: 048
     Dates: start: 20000314, end: 20100412
  4. FOSIPRES [Concomitant]
     Indication: HYPERTENSION
     Dosage: 20 MG, DAILY (1/D)
     Route: 048
     Dates: start: 20011016, end: 20100412
  5. ACE INHIBITOR NOS [Concomitant]
     Indication: DYSLIPIDAEMIA
     Dosage: UNK, UNKNOWN
     Route: 065
     Dates: start: 20011001, end: 20100412
  6. XENICAL [Concomitant]
     Dosage: UNK, UNKNOWN
     Route: 065
     Dates: start: 20071201, end: 20100412
  7. ASCRIPTIN [Concomitant]
     Dosage: UNK, UNKNOWN
     Route: 065
     Dates: start: 20060301, end: 20100412
  8. FENOFIBRATE [Concomitant]
     Dosage: UNK, UNKNOWN
     Route: 065
     Dates: start: 20030701, end: 20100412

REACTIONS (1)
  - PANCREATITIS ACUTE [None]
